FAERS Safety Report 20252685 (Version 1)
Quarter: 2021Q4

REPORT INFORMATION
  Report Type: Spontaneous
  Country: US (occurrence: US)
  Receive Date: 20211229
  Receipt Date: 20211229
  Transmission Date: 20220304
  Serious: Yes (Other)
  Sender: FDA-Public Use
  Company Number: US-PURDUE-USA-2020-0225733

PATIENT

DRUGS (1)
  1. OXYCONTIN [Suspect]
     Active Substance: OXYCODONE HYDROCHLORIDE
     Indication: Breakthrough pain
     Dosage: UNKNOWN (3X80MG PER DAY AND 90/5MG PER WEEK)
     Route: 048

REACTIONS (10)
  - Drug dependence [Unknown]
  - Emotional distress [Unknown]
  - Dental implantation [Unknown]
  - Dental caries [Unknown]
  - Product availability issue [Unknown]
  - Back pain [Unknown]
  - Anxiety [Unknown]
  - Drug withdrawal syndrome [Unknown]
  - Product prescribing error [Unknown]
  - Pain [Unknown]
